FAERS Safety Report 7542957-6 (Version None)
Quarter: 2011Q2

REPORT INFORMATION
  Report Type: 
  Country: None (occurrence: None)
  Receive Date: 20110613
  Receipt Date: 20110603
  Transmission Date: 20111010
  Serious: Yes (Hospitalization)
  Sender: FDA-Public Use
  Company Number: US-BRISTOL-MYERS SQUIBB COMPANY-15802747

PATIENT
  Age: 66 Year
  Sex: Female
  Weight: 123 kg

DRUGS (18)
  1. LASIX [Concomitant]
  2. LANTUS [Concomitant]
  3. ZETIA [Concomitant]
  4. SYNTHROID [Concomitant]
  5. COUMADIN [Suspect]
     Indication: MYOCARDIAL INFARCTION
     Dosage: DOSE DECREASED TO 2.5MG
     Dates: start: 20070701, end: 20090801
  6. METFORMIN HCL [Concomitant]
  7. DIOVAN [Concomitant]
  8. GLIPIZIDE [Concomitant]
  9. KEFLEX [Concomitant]
  10. COUMADIN [Suspect]
     Indication: CARDIAC FAILURE CONGESTIVE
     Dosage: DOSE DECREASED TO 2.5MG
     Dates: start: 20070701, end: 20090801
  11. ALTACE [Concomitant]
  12. BETADINE [Concomitant]
  13. NEXIUM [Concomitant]
  14. ASPIRIN [Concomitant]
     Indication: CARDIAC FAILURE CONGESTIVE
     Dosage: DOSE INCREASED TO 325MG
     Dates: start: 20070701
  15. ASPIRIN [Concomitant]
     Indication: MYOCARDIAL INFARCTION
     Dosage: DOSE INCREASED TO 325MG
     Dates: start: 20070701
  16. NITROGLYCERIN [Concomitant]
  17. PLAVIX [Suspect]
     Dosage: INT ON 17MAY11
     Dates: end: 20110517
  18. ACTOS [Concomitant]

REACTIONS (11)
  - PERIPHERAL COLDNESS [None]
  - ALOPECIA [None]
  - LACERATION [None]
  - WEIGHT DECREASED [None]
  - PRURITUS [None]
  - CONTUSION [None]
  - GINGIVAL BLEEDING [None]
  - MYOCARDIAL INFARCTION [None]
  - CELLULITIS [None]
  - GINGIVITIS [None]
  - PAIN IN EXTREMITY [None]
